FAERS Safety Report 8037086-1 (Version None)
Quarter: 2012Q1

REPORT INFORMATION
  Report Type: 
  Country: None (occurrence: None)
  Receive Date: 20120111
  Receipt Date: 20120106
  Transmission Date: 20120608
  Serious: Yes (Other)
  Sender: FDA-Public Use
  Company Number: US-GLAXOSMITHKLINE-A0960414A

PATIENT
  Age: 34 Year
  Sex: Female

DRUGS (13)
  1. WELLBUTRIN [Suspect]
     Indication: DEPRESSIVE SYMPTOM
     Route: 048
  2. EFFEXOR [Suspect]
     Indication: DEPRESSIVE SYMPTOM
     Route: 065
  3. MULTI-VITAMINS [Concomitant]
  4. TRILEPTAL [Concomitant]
  5. GEODON [Suspect]
     Indication: PRODUCT USED FOR UNKNOWN INDICATION
     Route: 065
  6. FISH OIL [Concomitant]
  7. LEXAPRO [Suspect]
     Indication: DEPRESSIVE SYMPTOM
     Route: 065
  8. LIPITOR [Concomitant]
     Route: 048
  9. FOLPLEX [Concomitant]
  10. LAMICTAL [Suspect]
     Indication: BIPOLAR II DISORDER
     Dosage: 300MG UNKNOWN
     Route: 048
     Dates: start: 20010101
  11. LAMOTRIGINE [Suspect]
     Indication: BIPOLAR II DISORDER
     Dosage: 300MG UNKNOWN
     Route: 048
  12. MICROGESTIN 1.5/30 [Suspect]
     Indication: CONTRACEPTION
     Route: 065
  13. NORTRIPTYLINE HCL [Concomitant]

REACTIONS (12)
  - DEPRESSED MOOD [None]
  - DISABILITY [None]
  - ACTIVITIES OF DAILY LIVING IMPAIRED [None]
  - BEDRIDDEN [None]
  - DISTURBANCE IN ATTENTION [None]
  - ABORTION SPONTANEOUS [None]
  - HYPERSOMNIA [None]
  - OVERDOSE [None]
  - DEPRESSION [None]
  - STRESS [None]
  - MATERNAL EXPOSURE DURING PREGNANCY [None]
  - DRUG LEVEL DECREASED [None]
